FAERS Safety Report 23411685 (Version 1)
Quarter: 2024Q1

REPORT INFORMATION
  Report Type: Spontaneous
  Country: CN (occurrence: CN)
  Receive Date: 20240117
  Receipt Date: 20240117
  Transmission Date: 20240410
  Serious: Yes (Death, Life-Threatening, Hospitalization, Other)
  Sender: FDA-Public Use
  Company Number: CN-PFIZER INC-PV202300203661

PATIENT
  Age: 5 Year
  Sex: Female

DRUGS (15)
  1. DASATINIB [Suspect]
     Active Substance: DASATINIB
     Indication: B-cell type acute leukaemia
     Route: 048
     Dates: start: 20211221, end: 20211227
  2. DASATINIB [Suspect]
     Active Substance: DASATINIB
     Indication: Acute lymphocytic leukaemia
  3. DOXORUBICIN [Suspect]
     Active Substance: DOXORUBICIN
     Indication: Acute lymphocytic leukaemia
     Dosage: REINDUCTION CHEMOTHERAPY USING PICC
     Dates: start: 20211221, end: 20211227
  4. DOXORUBICIN [Suspect]
     Active Substance: DOXORUBICIN
     Indication: B-cell type acute leukaemia
     Dosage: INDUCTION CHEMOTHERAPY
     Dates: start: 202103
  5. VINDESINE [Suspect]
     Active Substance: VINDESINE
     Indication: B-cell type acute leukaemia
     Dosage: REINDUCTION CHEMOTHERAPY USING PICC
     Dates: start: 20211221, end: 20211227
  6. VINDESINE [Suspect]
     Active Substance: VINDESINE
     Indication: Acute lymphocytic leukaemia
     Dosage: INDUCTION CHEMOTHERAPY
     Dates: start: 202103
  7. CYTARABINE [Suspect]
     Active Substance: CYTARABINE
     Indication: Acute lymphocytic leukaemia
     Route: 029
     Dates: start: 20211221, end: 20211227
  8. CYTARABINE [Suspect]
     Active Substance: CYTARABINE
     Indication: B-cell type acute leukaemia
  9. DEXAMETHASONE [Suspect]
     Active Substance: DEXAMETHASONE
     Indication: Acute lymphocytic leukaemia
     Dosage: INDUCTION CHEMOTHERAPY
     Dates: start: 202103
  10. DEXAMETHASONE [Suspect]
     Active Substance: DEXAMETHASONE
     Indication: B-cell type acute leukaemia
     Dosage: REINDUCTION CHEMOTHERAPY USING PICC
     Dates: start: 20211221, end: 20211227
  11. DEXAMETHASONE [Suspect]
     Active Substance: DEXAMETHASONE
     Route: 029
     Dates: start: 20211221, end: 20211227
  12. METHOTREXATE [Suspect]
     Active Substance: METHOTREXATE
     Indication: B-cell type acute leukaemia
     Route: 029
     Dates: start: 20211221, end: 20211227
  13. METHOTREXATE [Suspect]
     Active Substance: METHOTREXATE
     Indication: Acute lymphocytic leukaemia
  14. PEGASPARGASE [Suspect]
     Active Substance: PEGASPARGASE
     Indication: B-cell type acute leukaemia
     Dosage: INDUCTION CHEMOTHERAPY
     Dates: start: 202103
  15. PEGASPARGASE [Suspect]
     Active Substance: PEGASPARGASE
     Indication: Acute lymphocytic leukaemia
     Dosage: REINDUCTION CHEMOTHERAPY USING PICC
     Dates: start: 20211221, end: 20211227

REACTIONS (16)
  - Fusarium infection [Fatal]
  - Endophthalmitis [Fatal]
  - Klebsiella infection [Fatal]
  - Haematological infection [Fatal]
  - Ulcerative keratitis [Fatal]
  - Viral infection [Fatal]
  - Aspergillus infection [Fatal]
  - Respiratory disorder [Fatal]
  - Fusarium endocarditis [Fatal]
  - Aortic thrombosis [Fatal]
  - Encephalitis fungal [Fatal]
  - Arthritis fungal [Fatal]
  - Panophthalmitis [Fatal]
  - Extradural haematoma [Fatal]
  - Central nervous system infection [Fatal]
  - Multiple organ dysfunction syndrome [Fatal]

NARRATIVE: CASE EVENT DATE: 20211201
